FAERS Safety Report 24709827 (Version 1)
Quarter: 2024Q4

REPORT INFORMATION
  Report Type: Spontaneous
  Country: CN (occurrence: CN)
  Receive Date: 20241209
  Receipt Date: 20241209
  Transmission Date: 20250115
  Serious: Yes (Other)
  Sender: Haleon PLC
  Company Number: CN-HALEON-2212897

PATIENT
  Age: 44 Year
  Sex: Female

DRUGS (9)
  1. IBUPROFEN [Suspect]
     Active Substance: IBUPROFEN
     Indication: Sleep disorder
     Dosage: SUSTAINED-RELEASE CAPSULES
     Route: 048
  2. IBUPROFEN [Suspect]
     Active Substance: IBUPROFEN
     Indication: Hepatitis B
  3. IBUPROFEN [Suspect]
     Active Substance: IBUPROFEN
     Indication: Headache
  4. NIMODIPINE [Suspect]
     Active Substance: NIMODIPINE
     Indication: Sleep disorder
     Dosage: TIME INTERVAL: 0.33333333 DAYS
     Route: 048
  5. NIMODIPINE [Suspect]
     Active Substance: NIMODIPINE
     Indication: Hepatitis B
  6. ENTECAVIR [Suspect]
     Active Substance: ENTECAVIR
     Indication: Sleep disorder
     Route: 048
  7. ENTECAVIR [Suspect]
     Active Substance: ENTECAVIR
     Indication: Hepatitis B
  8. ALPRAZOLAM [Suspect]
     Active Substance: ALPRAZOLAM
     Indication: Sleep disorder
     Dosage: 0.4 MG, 1 TIME/BEDTIME
     Route: 048
  9. ALPRAZOLAM [Suspect]
     Active Substance: ALPRAZOLAM
     Indication: Hepatitis B

REACTIONS (4)
  - Reversible cerebral vasoconstriction syndrome [Unknown]
  - Drug ineffective [Unknown]
  - Vertebrobasilar artery dissection [Unknown]
  - Intracranial aneurysm [Unknown]
